FAERS Safety Report 9846690 (Version 1)
Quarter: 2014Q1

REPORT INFORMATION
  Report Type: Report from Study
  Country: CO (occurrence: CO)
  Receive Date: 20140127
  Receipt Date: 20140127
  Transmission Date: 20141002
  Serious: Yes (Other)
  Sender: FDA-Public Use
  Company Number: CO-ABBVIE-14P-036-1193415-00

PATIENT
  Age: 26 Year
  Sex: Female
  Weight: 53 kg

DRUGS (5)
  1. HUMIRA [Suspect]
     Indication: RHEUMATOID ARTHRITIS
     Route: 058
     Dates: start: 20091105, end: 20131223
  2. ACETAMINOPHEN [Concomitant]
     Indication: PAIN
     Dosage: ACCORDING PAIN
     Route: 048
  3. SERTRALINE [Concomitant]
     Indication: PRODUCT USED FOR UNKNOWN INDICATION
  4. METHOTREXATE [Concomitant]
     Indication: PRODUCT USED FOR UNKNOWN INDICATION
     Route: 048
  5. FOLIC ACID [Concomitant]
     Indication: PRODUCT USED FOR UNKNOWN INDICATION

REACTIONS (3)
  - Nodule [Not Recovered/Not Resolved]
  - Granuloma [Not Recovered/Not Resolved]
  - Benign bone neoplasm [Not Recovered/Not Resolved]
